FAERS Safety Report 5232584-8 (Version None)
Quarter: 2007Q1

REPORT INFORMATION
  Report Type: 
  Country: None (occurrence: None)
  Receive Date: 20070206
  Receipt Date: 20070206
  Transmission Date: 20070707
  Serious: Yes (Hospitalization)
  Sender: FDA-Public Use
  Company Number: None

PATIENT
  Sex: Male
  Weight: 97.977 kg

DRUGS (10)
  1. CITALOPRAM HYDROBROMIDE [Suspect]
     Indication: DEPRESSION
     Dosage: 10 MG QAM PO
     Route: 048
     Dates: start: 20061113, end: 20061127
  2. DICLOFENAC SODIUM [Suspect]
     Indication: MUSCULOSKELETAL CHEST PAIN
     Dosage: 25 MG TID PRN PO
     Route: 048
     Dates: start: 20061113, end: 20061127
  3. NITROGLYCERIN [Concomitant]
  4. ISOSORBIDE MONONITRATE [Concomitant]
  5. ASPIRIN [Concomitant]
  6. ATORVASTATIN [Concomitant]
  7. METOPROLOL SUCCINATE [Concomitant]
  8. CAPSAICIN .25% CREAM [Concomitant]
  9. CITALOPRAM HYDROBROMIDE [Concomitant]
  10. DICLOFENAC SODIUM [Concomitant]

REACTIONS (4)
  - ANGIOEDEMA [None]
  - HYPOAESTHESIA ORAL [None]
  - LIP SWELLING [None]
  - RASH GENERALISED [None]
